FAERS Safety Report 13354044 (Version 1)
Quarter: 2017Q1

REPORT INFORMATION
  Report Type: Spontaneous
  Country: US (occurrence: US)
  Receive Date: 20170321
  Receipt Date: 20170321
  Transmission Date: 20170429
  Serious: Yes (Hospitalization, Other)
  Sender: FDA-Public Use
  Company Number: US-AUROBINDO-AUR-APL-2017-30942

PATIENT
  Age: 18 Year
  Sex: Female

DRUGS (2)
  1. PROMETHAZINE - DEXTROMETHORPHANE [Concomitant]
     Indication: BRONCHITIS
     Route: 065
  2. AZITHROMYCIN ANHYDROUS. [Suspect]
     Active Substance: AZITHROMYCIN ANHYDROUS
     Indication: BRONCHITIS
     Route: 048

REACTIONS (20)
  - Vomiting [Unknown]
  - Acute hepatic failure [Unknown]
  - Diarrhoea [Unknown]
  - Gingival bleeding [Unknown]
  - Abdominal discomfort [Unknown]
  - Dizziness [Unknown]
  - Hyperhidrosis [Unknown]
  - Hepato-lenticular degeneration [Unknown]
  - Fall [Unknown]
  - Tachycardia [Unknown]
  - Abdominal distension [Unknown]
  - Burning sensation [Unknown]
  - Chromaturia [Unknown]
  - Hepatic steatosis [Unknown]
  - Nausea [Unknown]
  - Syncope [Unknown]
  - Jaundice [Unknown]
  - Abdominal pain [Unknown]
  - Laceration [Unknown]
  - Vaginal haemorrhage [Unknown]
